FAERS Safety Report 20648478 (Version 1)
Quarter: 2022Q1

REPORT INFORMATION
  Report Type: Spontaneous
  Country: US (occurrence: None)
  Receive Date: 20220328
  Receipt Date: 20220328
  Transmission Date: 20220423
  Serious: Yes (Disabling)
  Sender: FDA-Public Use
  Company Number: None

PATIENT
  Age: 56 Year
  Sex: Female
  Weight: 49.5 kg

DRUGS (5)
  1. KADIAN [Suspect]
     Active Substance: MORPHINE SULFATE
     Indication: Complex regional pain syndrome
     Dosage: 30 CAPSULES  24 HOUR SUSTAIN RE?
     Route: 048
     Dates: start: 20220312, end: 20220328
  2. KADIAN [Suspect]
     Active Substance: MORPHINE SULFATE
     Indication: Pain
  3. LIDODERM [Suspect]
     Active Substance: LIDOCAINE
  4. GABAPENTIN [Concomitant]
     Active Substance: GABAPENTIN
  5. HYDROCORTISONE [Suspect]
     Active Substance: HYDROCORTISONE

REACTIONS (5)
  - Suspected product quality issue [None]
  - Weight decreased [None]
  - Loss of consciousness [None]
  - Fracture [None]
  - Therapeutic product effect decreased [None]

NARRATIVE: CASE EVENT DATE: 20220312
